FAERS Safety Report 7496840-5 (Version None)
Quarter: 2011Q2

REPORT INFORMATION
  Report Type: 
  Country: None (occurrence: None)
  Receive Date: 20110523
  Receipt Date: 20110519
  Transmission Date: 20111010
  Serious: Yes (Other)
  Sender: FDA-Public Use
  Company Number: CH-PFIZER INC-2011090318

PATIENT
  Age: 63 Year
  Sex: Female
  Weight: 54 kg

DRUGS (8)
  1. TAZOBAC [Concomitant]
     Indication: PYREXIA
     Dosage: UNK
     Dates: start: 20110328, end: 20110405
  2. TAZOBAC [Concomitant]
     Dosage: 4.5 G, 4X/DAY
     Route: 051
     Dates: start: 20110407, end: 20110408
  3. MORPHINE HYDROCHLORIDE [Concomitant]
     Indication: PAIN
     Dosage: 5 MG, AS NEEDED
     Route: 048
     Dates: start: 20110401
  4. DASATINIB [Suspect]
     Indication: ACUTE MYELOID LEUKAEMIA
     Dosage: 100 MG, 1X/DAY
     Route: 048
     Dates: start: 20110318
  5. CYTOSAR-U [Suspect]
     Indication: ACUTE MYELOID LEUKAEMIA
  6. IDARUBICIN HYDROCHLORIDE [Suspect]
     Indication: ACUTE MYELOID LEUKAEMIA
  7. MEROPENEM [Concomitant]
     Indication: CLOSTRIDIUM BACTERAEMIA
     Dosage: 1000 MG, 3X/DAY
     Route: 041
     Dates: start: 20110405, end: 20110406
  8. LORAZEPAM [Concomitant]
     Dosage: AS NEEDED
     Dates: start: 20110331

REACTIONS (4)
  - NAUSEA [None]
  - STREPTOCOCCAL BACTERAEMIA [None]
  - AGRANULOCYTOSIS [None]
  - VOMITING [None]
